FAERS Safety Report 7016250-4 (Version None)
Quarter: 2010Q3

REPORT INFORMATION
  Report Type: 
  Country: None (occurrence: None)
  Receive Date: 20100927
  Receipt Date: 20100201
  Transmission Date: 20110219
  Serious: No
  Sender: FDA-Public Use
  Company Number: US-ASTRAZENECA-2009SE34005

PATIENT
  Age: 73 Year
  Sex: Female

DRUGS (7)
  1. ARIMIDEX [Suspect]
     Route: 048
     Dates: start: 20080101
  2. PLAVIX [Concomitant]
  3. LABETALOL HCL [Concomitant]
  4. DIOVAN [Concomitant]
  5. RED RICE YEAST [Concomitant]
  6. B6 AND B12 [Concomitant]
  7. MULTI-VITAMIN [Concomitant]

REACTIONS (4)
  - CATARACT OPERATION [None]
  - CONSTIPATION [None]
  - PHOTOPHOBIA [None]
  - PRURITUS [None]
